FAERS Safety Report 8082062-6 (Version None)
Quarter: 2012Q1

REPORT INFORMATION
  Report Type: 
  Country: None (occurrence: None)
  Receive Date: 20120127
  Receipt Date: 20110225
  Transmission Date: 20120608
  Serious: No
  Sender: FDA-Public Use
  Company Number: US-ABBOTT-11P-163-0707812-00

PATIENT
  Age: 51 Year
  Sex: Female

DRUGS (14)
  1. NEXIUM [Concomitant]
     Indication: GASTROOESOPHAGEAL REFLUX DISEASE
  2. HUMIRA [Suspect]
     Indication: CROHN'S DISEASE
     Dosage: 160MG LOADING DOSE 14 FEB 2011
     Dates: start: 20110214
  3. PERMETHAZINE [Concomitant]
     Indication: NAUSEA
  4. DILTIAZEM HCL [Concomitant]
     Indication: MITRAL VALVE PROLAPSE
  5. TOPAMAX [Concomitant]
     Indication: FIBROMYALGIA
  6. CIPROFLOXACIN HCL [Concomitant]
     Indication: CROHN'S DISEASE
  7. OXYCODONE HCL AND ACETAMINOPHEN [Concomitant]
     Indication: PAIN
  8. CYMBALTA [Concomitant]
     Indication: FIBROMYALGIA
  9. VITAMIN D [Concomitant]
     Indication: VITAMIN SUPPLEMENTATION
  10. ASCORBIC ACID [Concomitant]
     Indication: VITAMIN SUPPLEMENTATION
  11. TIZANIDINE HCL [Concomitant]
     Indication: MUSCLE SPASMS
  12. COLESTIPOL HYDROCHLORIDE [Concomitant]
     Indication: CROHN'S DISEASE
  13. FENTANYL [Concomitant]
     Indication: PAIN
     Dosage: PATCH
  14. VITAMIN B-12 [Concomitant]
     Indication: VITAMIN SUPPLEMENTATION

REACTIONS (1)
  - HERPES ZOSTER [None]
